FAERS Safety Report 5681880-9 (Version None)
Quarter: 2008Q1

REPORT INFORMATION
  Report Type: 
  Country: None (occurrence: None)
  Receive Date: 20080327
  Receipt Date: 20070321
  Transmission Date: 20080703
  Serious: No
  Sender: FDA-Public Use
  Company Number: US-BAYER-US-2007-010279

PATIENT
  Age: 45 Year
  Sex: Female
  Weight: 52 kg

DRUGS (1)
  1. MIRENA [Suspect]
     Indication: CONTRACEPTION
     Route: 015
     Dates: start: 20040624

REACTIONS (2)
  - AMENORRHOEA [None]
  - METRORRHAGIA [None]
